FAERS Safety Report 26103836 (Version 1)
Quarter: 2025Q4

REPORT INFORMATION
  Report Type: Spontaneous
  Country: US (occurrence: US)
  Receive Date: 20251129
  Receipt Date: 20251129
  Transmission Date: 20260118
  Serious: No
  Sender: LUPIN
  Company Number: US-LUPIN PHARMACEUTICALS INC.-2025-10672

PATIENT
  Age: 91 Year
  Weight: 52.154 kg

DRUGS (1)
  1. ALBUTEROL SULFATE [Suspect]
     Active Substance: ALBUTEROL SULFATE
     Indication: Bronchiectasis
     Dosage: UNK ABOUT 3-5 TIMES A DAY, PRN

REACTIONS (5)
  - Drug dose omission by device [Unknown]
  - Device malfunction [Unknown]
  - Off label use [Unknown]
  - Wrong technique in product usage process [Unknown]
  - Device delivery system issue [Unknown]
